FAERS Safety Report 5283587-9 (Version None)
Quarter: 2007Q2

REPORT INFORMATION
  Report Type: 
  Country: None (occurrence: None)
  Receive Date: 20070402
  Receipt Date: 20070323
  Transmission Date: 20071010
  Serious: Yes (Hospitalization)
  Sender: FDA-Public Use
  Company Number: IT-ROCHE-489203

PATIENT
  Age: 54 Year
  Sex: Male

DRUGS (4)
  1. MYCOPHENOLATE MOFETIL [Suspect]
     Route: 048
     Dates: start: 20070217
  2. FK506 [Suspect]
     Route: 048
     Dates: start: 20070217
  3. FK506 [Suspect]
     Route: 048
     Dates: end: 20070223
  4. FK506 [Suspect]
     Route: 048
     Dates: start: 20070226

REACTIONS (1)
  - THERAPEUTIC AGENT TOXICITY [None]
